FAERS Safety Report 8387869-3 (Version None)
Quarter: 2012Q2

REPORT INFORMATION
  Report Type: 
  Country: None (occurrence: None)
  Receive Date: 20120525
  Receipt Date: 20120521
  Transmission Date: 20120825
  Serious: Yes (Hospitalization, Other)
  Sender: FDA-Public Use
  Company Number: US-TEVA-339412USA

PATIENT
  Age: 54 Year
  Sex: Female

DRUGS (3)
  1. METFORMIN HCL [Suspect]
  2. SIMVASTATIN [Concomitant]
     Dosage: 20 MILLIGRAM;
  3. LISINOPRIL [Suspect]
     Dosage: 5MG DAILY

REACTIONS (6)
  - HYPOTHERMIA [None]
  - URINARY TRACT INFECTION [None]
  - RESPIRATORY DISTRESS [None]
  - RENAL FAILURE ACUTE [None]
  - LACTIC ACIDOSIS [None]
  - HYPOVOLAEMIA [None]
